FAERS Safety Report 4279589-1 (Version None)
Quarter: 2004Q1

REPORT INFORMATION
  Report Type: 
  Country: None (occurrence: None)
  Receive Date: 20040127
  Receipt Date: 20030929
  Transmission Date: 20041129
  Serious: Yes (Death)
  Sender: FDA-Public Use
  Company Number: GB-BRISTOL-MYERS SQUIBB COMPANY-12395810

PATIENT
  Age: 53 Year
  Sex: Female

DRUGS (6)
  1. PACLITAXEL [Suspect]
     Indication: CARCINOMA
     Dosage: TRIAL ARM #1
     Route: 042
     Dates: start: 20030926, end: 20030926
  2. CARBOPLATIN [Suspect]
     Indication: CARCINOMA
     Dosage: TRIAL ARM #1
     Route: 042
     Dates: start: 20030926, end: 20030926
  3. LANSOPRAZOLE [Concomitant]
     Dates: start: 20030925, end: 20030925
  4. METOCLOPRAMIDE [Concomitant]
     Dates: start: 20030926, end: 20030926
  5. SENNA [Concomitant]
     Dosage: DOSAGE REPORTED AS ^2^
     Dates: start: 20030926, end: 20030926
  6. SIMVASTATIN [Concomitant]
     Dates: start: 20030926, end: 20030926

REACTIONS (1)
  - CARDIAC ARREST [None]
